FAERS Safety Report 4935511-3 (Version None)
Quarter: 2006Q1

REPORT INFORMATION
  Report Type: 
  Country: None (occurrence: None)
  Receive Date: 20060307
  Receipt Date: 19930223
  Transmission Date: 20060701
  Serious: Yes (Death, Hospitalization)
  Sender: FDA-Public Use
  Company Number: CA-GLAXOSMITHKLINE-B0167010A

PATIENT
  Age: 64 Year
  Sex: Male

DRUGS (16)
  1. TRANYLCYPROMINE [Suspect]
     Indication: DEPRESSION
     Dosage: 60MG PER DAY
     Route: 065
     Dates: start: 19920101
  2. ASPIRIN [Concomitant]
  3. CHLORDIAZEPOXIDE [Concomitant]
  4. DIGOXIN [Concomitant]
  5. DILTIAZEM [Concomitant]
  6. DOMPERIDONE [Concomitant]
  7. FLURAZEPAM [Concomitant]
  8. FUROSEMIDE [Concomitant]
  9. IRON [Concomitant]
  10. ISOSORBIDE [Concomitant]
  11. METOPROLOL [Concomitant]
  12. MORPHINE [Concomitant]
  13. OMEPRAZOLE [Concomitant]
  14. PANCURONIUM [Concomitant]
  15. PERPHENAZINE [Concomitant]
  16. SUCRALFATE [Concomitant]

REACTIONS (23)
  - ANGINA PECTORIS [None]
  - BLOOD CREATININE INCREASED [None]
  - CARDIAC ARREST [None]
  - CHILLS [None]
  - DEATH [None]
  - DRUG INTERACTION [None]
  - HYPERTENSION [None]
  - HYPERTHERMIA [None]
  - HYPOTENSION [None]
  - HYPOTHERMIA [None]
  - HYPOXIA [None]
  - LOBAR PNEUMONIA [None]
  - METABOLIC ACIDOSIS [None]
  - MYELODYSPLASTIC SYNDROME [None]
  - MYOCARDIAL INFARCTION [None]
  - MYOCARDIAL ISCHAEMIA [None]
  - NO ADVERSE EFFECT [None]
  - PULMONARY EMBOLISM [None]
  - PULMONARY OEDEMA [None]
  - RESPIRATORY ACIDOSIS [None]
  - SEPSIS [None]
  - TACHYCARDIA [None]
  - URINE OUTPUT DECREASED [None]
